FAERS Safety Report 19509785 (Version 1)
Quarter: 2021Q3

REPORT INFORMATION
  Report Type: Report from Study
  Country: FR (occurrence: FR)
  Receive Date: 20210708
  Receipt Date: 20210708
  Transmission Date: 20211014
  Serious: Yes (Other)
  Sender: FDA-Public Use
  Company Number: FR-PFIZER INC-2021802545

PATIENT
  Age: 43 Year
  Sex: Female
  Weight: 48 kg

DRUGS (10)
  1. ARACYTINE [Suspect]
     Active Substance: CYTARABINE
     Dosage: UNK
     Dates: start: 20210419
  2. ZELITREX [Concomitant]
     Active Substance: VALACYCLOVIR HYDROCHLORIDE
     Dosage: UNK
     Dates: start: 20200516
  3. TAZOCILLINE [Concomitant]
     Active Substance: PIPERACILLIN SODIUM\TAZOBACTAM SODIUM
     Dosage: UNK
     Dates: start: 20210419
  4. NOMEGESTROL [Concomitant]
     Active Substance: NOMEGESTROL
     Dosage: UNK
     Dates: start: 2010
  5. PEMIGATINIB [Suspect]
     Active Substance: PEMIGATINIB
     Indication: ACUTE LEUKAEMIA
     Dosage: 13.5 MG, DAILY
     Route: 048
     Dates: start: 20210204, end: 20210413
  6. LORMETAZEPAM [Concomitant]
     Active Substance: LORMETAZEPAM
     Dosage: UNK
     Dates: start: 202005
  7. CASPOFUNGIN [Concomitant]
     Active Substance: CASPOFUNGIN
     Dosage: UNK
     Dates: start: 20210414
  8. TITANOREINE [CHONDRUS CRISPUS EXTRACT;LIDOCAINE;TITANIUM DIOXIDE;ZINC [Concomitant]
     Active Substance: CARRAGEENAN\LIDOCAINE\TITANIUM\ZINC
     Dosage: UNK
     Dates: start: 20210330
  9. PANTOPRAZOLE [Concomitant]
     Active Substance: PANTOPRAZOLE
     Dosage: UNK
     Dates: start: 2021
  10. IDARUBICIN HCL [Suspect]
     Active Substance: IDARUBICIN HYDROCHLORIDE
     Dosage: UNK
     Dates: start: 20210419

REACTIONS (1)
  - Stenotrophomonas infection [Recovering/Resolving]

NARRATIVE: CASE EVENT DATE: 20210508
